FAERS Safety Report 20031783 (Version 2)
Quarter: 2021Q4

REPORT INFORMATION
  Report Type: Report from Study
  Country: US (occurrence: US)
  Receive Date: 20211103
  Receipt Date: 20211107
  Transmission Date: 20220303
  Serious: Yes (Other)
  Sender: FDA-Public Use
  Company Number: US-ABBVIE-21K-163-4142509-00

PATIENT
  Age: 78 Year
  Sex: Female
  Weight: 61.744 kg

DRUGS (9)
  1. SKYRIZI [Suspect]
     Active Substance: RISANKIZUMAB-RZAA
     Indication: Psoriasis
     Route: 058
     Dates: start: 2020
  2. PFIZER-BIONTECH COVID-19 VACCINE [Concomitant]
     Active Substance: TOZINAMERAN
     Indication: COVID-19 immunisation
     Route: 030
     Dates: start: 20210331, end: 20210331
  3. PFIZER-BIONTECH COVID-19 VACCINE [Concomitant]
     Active Substance: TOZINAMERAN
     Route: 030
     Dates: start: 20210503, end: 20210503
  4. POTASSIUM [Concomitant]
     Active Substance: POTASSIUM
     Indication: Vitamin supplementation
  5. VITAMIN D3 [Concomitant]
     Active Substance: CHOLECALCIFEROL
     Indication: Vitamin supplementation
  6. ALBUTEROL [Concomitant]
     Active Substance: ALBUTEROL
     Indication: Gastrointestinal disorder therapy
  7. CARAFATE [Concomitant]
     Active Substance: SUCRALFATE
     Indication: Gastrointestinal disorder therapy
  8. WELLBUTRIN [Concomitant]
     Active Substance: BUPROPION HYDROCHLORIDE
     Indication: Anxiety
  9. BENTYL [Concomitant]
     Active Substance: DICYCLOMINE HYDROCHLORIDE
     Indication: Anxiety

REACTIONS (9)
  - Intervertebral disc protrusion [Recovering/Resolving]
  - Bone density decreased [Not Recovered/Not Resolved]
  - Arthralgia [Recovering/Resolving]
  - Adhesion [Recovering/Resolving]
  - Gout [Not Recovered/Not Resolved]
  - Osteoporosis [Not Recovered/Not Resolved]
  - Rheumatoid arthritis [Not Recovered/Not Resolved]
  - Psoriatic arthropathy [Not Recovered/Not Resolved]
  - COVID-19 [Recovered/Resolved]

NARRATIVE: CASE EVENT DATE: 20201222
